FAERS Safety Report 11209581 (Version 1)
Quarter: 2015Q2

REPORT INFORMATION
  Report Type: Spontaneous
  Country: JP (occurrence: JP)
  Receive Date: 20150622
  Receipt Date: 20150622
  Transmission Date: 20150821
  Serious: Yes (Death)
  Sender: FDA-Public Use
  Company Number: JP-TEVA-570766ISR

PATIENT
  Sex: Male
  Weight: 46 kg

DRUGS (6)
  1. LIDOCAINE. [Concomitant]
     Active Substance: LIDOCAINE
     Indication: CANCER PAIN
     Dosage: 120 MILLIGRAM DAILY;
     Route: 058
     Dates: start: 20141201, end: 20141206
  2. ONEDURO [Concomitant]
     Active Substance: FENTANYL
     Dosage: 1.7 MILLIGRAM DAILY;
     Route: 062
     Dates: start: 20141205, end: 20141212
  3. ONEDURO [Concomitant]
     Active Substance: FENTANYL
     Indication: CANCER PAIN
     Dosage: .84 MILLIGRAM DAILY;
     Route: 062
     Dates: end: 20141212
  4. OXINORM [Concomitant]
     Active Substance: OXYCODONE HYDROCHLORIDE
     Indication: CANCER PAIN
     Dosage: 5 MILLIGRAM DAILY;
     Route: 048
     Dates: end: 20141212
  5. RELIFEN [Concomitant]
     Active Substance: NABUMETONE
     Indication: CANCER PAIN
     Dosage: 800 MILLIGRAM DAILY;
     Route: 048
     Dates: end: 20141212
  6. E-FEN BUCCAL [Suspect]
     Active Substance: FENTANYL CITRATE
     Indication: BREAKTHROUGH PAIN
     Dosage: DAILY DOSE 50UGR-200UGR
     Route: 002
     Dates: start: 20141205, end: 20141210

REACTIONS (1)
  - Death [Fatal]
